FAERS Safety Report 19525107 (Version 1)
Quarter: 2021Q3

REPORT INFORMATION
  Report Type: Spontaneous
  Country: ID (occurrence: ID)
  Receive Date: 20210712
  Receipt Date: 20210712
  Transmission Date: 20211014
  Serious: Yes (Hospitalization, Other)
  Sender: FDA-Public Use
  Company Number: ID-JNJFOC-20210711575

PATIENT
  Age: 27 Year
  Sex: Female
  Weight: 70 kg

DRUGS (8)
  1. CAPREOMYCIN [Concomitant]
     Active Substance: CAPREOMYCIN
     Indication: TUBERCULOSIS
     Dates: start: 20181210
  2. LEVOFLOXACIN. [Suspect]
     Active Substance: LEVOFLOXACIN
     Route: 065
     Dates: start: 20181210
  3. BEDAQUILINE [Suspect]
     Active Substance: BEDAQUILINE
     Indication: TUBERCULOSIS
     Route: 048
     Dates: start: 20181210, end: 2019
  4. ETHAMBUTOL [Concomitant]
     Active Substance: ETHAMBUTOL HYDROCHLORIDE
     Indication: TUBERCULOSIS
     Route: 065
     Dates: start: 20181210
  5. CYCLOSERINE. [Concomitant]
     Active Substance: CYCLOSERINE
     Indication: TUBERCULOSIS
     Route: 065
     Dates: start: 20181210
  6. VITAMIN B6 [Concomitant]
     Active Substance: PYRIDOXINE HYDROCHLORIDE
     Indication: TUBERCULOSIS
     Route: 065
     Dates: start: 20181210
  7. OFLOXACIN. [Suspect]
     Active Substance: OFLOXACIN
     Indication: TUBERCULOSIS
     Route: 065
     Dates: start: 20181210, end: 2019
  8. PYRAZINAMIDE. [Concomitant]
     Active Substance: PYRAZINAMIDE
     Route: 065
     Dates: start: 20181210

REACTIONS (6)
  - Pneumonitis [Recovered/Resolved]
  - Hepatic enzyme increased [Recovered/Resolved]
  - Renal impairment [Recovered/Resolved]
  - Drug reaction with eosinophilia and systemic symptoms [Recovered/Resolved]
  - Blood electrolytes decreased [Recovered/Resolved]
  - Pneumonia [Recovered/Resolved]

NARRATIVE: CASE EVENT DATE: 20181228
